FAERS Safety Report 9808818 (Version 2)
Quarter: 2014Q2

REPORT INFORMATION
  Report Type: Report from Study
  Country: AR (occurrence: AR)
  Receive Date: 20140110
  Receipt Date: 20140428
  Transmission Date: 20141212
  Serious: Yes (Death, Other)
  Sender: FDA-Public Use
  Company Number: AR-ABBVIE-14P-007-1187306-00

PATIENT
  Sex: Female
  Weight: 103 kg

DRUGS (1)
  1. HUMIRA [Suspect]
     Indication: RHEUMATOID ARTHRITIS
     Route: 058
     Dates: start: 20120414

REACTIONS (2)
  - Cardio-respiratory arrest [Fatal]
  - Rheumatoid arthritis [Unknown]
